FAERS Safety Report 9834916 (Version 7)
Quarter: 2014Q3

REPORT INFORMATION
  Report Type: Report from Study
  Country: US (occurrence: US)
  Receive Date: 20140122
  Receipt Date: 20140909
  Transmission Date: 20150326
  Serious: Yes (Hospitalization, Other)
  Sender: FDA-Public Use
  Company Number: US-ACTELION-A-US2013-89479

PATIENT
  Age: 38 Year
  Sex: Female

DRUGS (7)
  1. ALDACTONE [Concomitant]
     Active Substance: SPIRONOLACTONE
     Dosage: 25 MG, UNK
     Dates: start: 201406
  2. VELETRI [Suspect]
     Active Substance: EPOPROSTENOL
     Indication: PULMONARY ARTERIAL HYPERTENSION
     Dosage: 63 NG/KG, PER MIN
     Route: 041
     Dates: start: 20130917
  3. COUMADIN [Concomitant]
     Active Substance: WARFARIN SODIUM
     Dosage: UNK, QD
  4. TORSEMIDE. [Concomitant]
     Active Substance: TORSEMIDE
     Dosage: 10 MG, QD
     Dates: start: 201402
  5. SYNTHROID [Concomitant]
     Active Substance: LEVOTHYROXINE SODIUM
     Dosage: 75 MCG, QD
     Dates: start: 201402
  6. K-DUR [Concomitant]
     Active Substance: POTASSIUM CHLORIDE
     Dosage: 20 MEQ, UNK
  7. CALCIUM + VIT D [Concomitant]
     Active Substance: CALCIUM\VITAMIN D
     Dosage: UNK, QD
     Dates: start: 201405

REACTIONS (11)
  - Heart rate increased [Unknown]
  - Tachycardia [Recovered/Resolved]
  - Device occlusion [Unknown]
  - Thyroidectomy [Recovering/Resolving]
  - Vitamin D decreased [Unknown]
  - Thyrotoxic crisis [Recovering/Resolving]
  - Blood calcium decreased [Recovering/Resolving]
  - Pneumonia [Recovered/Resolved]
  - Basedow^s disease [Unknown]
  - Hyperthyroidism [Unknown]
  - Palpitations [Recovered/Resolved]

NARRATIVE: CASE EVENT DATE: 20140104
